FAERS Safety Report 4590508-0 (Version None)
Quarter: 2005Q1

REPORT INFORMATION
  Report Type: 
  Country: None (occurrence: None)
  Receive Date: 20050217
  Receipt Date: 20050207
  Transmission Date: 20050727
  Serious: Yes (Hospitalization)
  Sender: FDA-Public Use
  Company Number: MK200502-0113-1

PATIENT
  Age: 57 Year
  Sex: Male

DRUGS (3)
  1. ANAFRANIL CAP [Suspect]
     Dates: start: 20010101, end: 20030501
  2. PROMAZINE HCL [Suspect]
     Dates: start: 20010101, end: 20030501
  3. CIPROFLOXACIN [Suspect]
     Dates: start: 20030501

REACTIONS (2)
  - NEUROLEPTIC MALIGNANT SYNDROME [None]
  - URINARY TRACT INFECTION [None]
